FAERS Safety Report 22625796 (Version 1)
Quarter: 2023Q2

REPORT INFORMATION
  Report Type: Spontaneous
  Country: RO (occurrence: RO)
  Receive Date: 20230621
  Receipt Date: 20230621
  Transmission Date: 20230721
  Serious: Yes (Other)
  Sender: FDA-Public Use
  Company Number: RO-ELI_LILLY_AND_COMPANY-RO202306009176

PATIENT
  Age: 51 Year
  Sex: Female

DRUGS (1)
  1. TALTZ [Suspect]
     Active Substance: IXEKIZUMAB
     Indication: Psoriasis
     Dosage: UNK UNK, UNKNOWN
     Route: 065

REACTIONS (2)
  - Pseudomonas infection [Not Recovered/Not Resolved]
  - Nail dystrophy [Not Recovered/Not Resolved]

NARRATIVE: CASE EVENT DATE: 20210510
